FAERS Safety Report 11635008 (Version 2)
Quarter: 2019Q1

REPORT INFORMATION
  Report Type: Report from Study
  Country: US (occurrence: US)
  Receive Date: 20151015
  Receipt Date: 20190123
  Transmission Date: 20190417
  Serious: Yes (Other)
  Sender: FDA-Public Use
  Company Number: US-SA-2015SA005232

PATIENT
  Age: 20 Month
  Sex: Female
  Weight: 11.6 kg

DRUGS (2)
  1. LUMIZYME [Suspect]
     Active Substance: ALGLUCOSIDASE ALFA
     Indication: GLYCOGEN STORAGE DISEASE TYPE II
     Dosage: DOSE:850,QOW
     Route: 041
     Dates: start: 20141030
  2. LUMIZYME [Suspect]
     Active Substance: ALGLUCOSIDASE ALFA
     Dosage: 40 MG/KG, QW
     Route: 041

REACTIONS (7)
  - Ear infection staphylococcal [Not Recovered/Not Resolved]
  - Scoliosis [Not Recovered/Not Resolved]
  - Off label use [Unknown]
  - Upper respiratory tract infection [Recovered/Resolved]
  - Fall [Unknown]
  - Condition aggravated [Not Recovered/Not Resolved]
  - Loss of personal independence in daily activities [Not Recovered/Not Resolved]

NARRATIVE: CASE EVENT DATE: 20141117
